FAERS Safety Report 16688266 (Version 2)
Quarter: 2019Q3

REPORT INFORMATION
  Report Type: Spontaneous
  Country: US (occurrence: US)
  Receive Date: 20190809
  Receipt Date: 20190815
  Transmission Date: 20191004
  Serious: Yes (Life-Threatening, Hospitalization, Other)
  Sender: FDA-Public Use
  Company Number: US-PFIZER INC-2019336489

PATIENT
  Age: 54 Year
  Sex: Male

DRUGS (1)
  1. IBUPROFEN. [Suspect]
     Active Substance: IBUPROFEN
     Indication: ARTHRALGIA
     Dosage: 800 MG, 3X/DAY, FOR A FEW MONTHS BEFORE PRESENTATION

REACTIONS (15)
  - Vascular pseudoaneurysm [Recovering/Resolving]
  - Upper gastrointestinal haemorrhage [Recovering/Resolving]
  - Ankle fracture [Recovering/Resolving]
  - Hepatic artery stenosis [Recovering/Resolving]
  - Streptococcal infection [Unknown]
  - Hepatic infarction [Recovering/Resolving]
  - Haemophilus infection [Unknown]
  - Fall [Recovered/Resolved]
  - Ischaemic hepatitis [Recovering/Resolving]
  - Syncope [Recovered/Resolved]
  - Haemoglobin decreased [Unknown]
  - Shock haemorrhagic [Recovering/Resolving]
  - Symptom masked [Recovering/Resolving]
  - Arterial occlusive disease [Recovering/Resolving]
  - Duodenal ulcer [Recovering/Resolving]
